FAERS Safety Report 6741544-7 (Version None)
Quarter: 2010Q2

REPORT INFORMATION
  Report Type: 
  Country: None (occurrence: None)
  Receive Date: 20100526
  Receipt Date: 20100519
  Transmission Date: 20101027
  Serious: Yes (Hospitalization, Other)
  Sender: FDA-Public Use
  Company Number: US-ABBOTT-10P-163-0645854-00

PATIENT
  Age: 11 Year
  Sex: Male

DRUGS (1)
  1. HUMIRA [Suspect]
     Indication: CROHN'S DISEASE
     Dates: start: 20100101

REACTIONS (6)
  - CLOSTRIDIAL INFECTION [None]
  - CROHN'S DISEASE [None]
  - DECREASED APPETITE [None]
  - HAEMATOCHEZIA [None]
  - INJECTION SITE PAIN [None]
  - PYREXIA [None]
